FAERS Safety Report 13393877 (Version 2)
Quarter: 2017Q2

REPORT INFORMATION
  Report Type: Spontaneous
  Country: NL (occurrence: NL)
  Receive Date: 20170331
  Receipt Date: 20170419
  Transmission Date: 20170830
  Serious: Yes (Disabling, Other)
  Sender: FDA-Public Use
  Company Number: NL-009507513-1703NLD012586

PATIENT
  Age: 29 Year
  Sex: Female

DRUGS (1)
  1. MARVELON [Suspect]
     Active Substance: DESOGESTREL\ETHINYL ESTRADIOL
     Indication: CONTRACEPTION
     Route: 048

REACTIONS (10)
  - Suicidal ideation [Unknown]
  - Gastric haemorrhage [Unknown]
  - Pain [Unknown]
  - Speech disorder [Unknown]
  - Alopecia [Recovered/Resolved]
  - Quality of life decreased [Unknown]
  - Feeling abnormal [Not Recovered/Not Resolved]
  - Insomnia [Unknown]
  - Vulvovaginal pain [Recovered/Resolved]
  - Withdrawal syndrome [Unknown]

NARRATIVE: CASE EVENT DATE: 1997
